FAERS Safety Report 4812697-2 (Version None)
Quarter: 2005Q4

REPORT INFORMATION
  Report Type: 
  Country: None (occurrence: None)
  Receive Date: 20051028
  Receipt Date: 20041108
  Transmission Date: 20060501
  Serious: No
  Sender: FDA-Public Use
  Company Number: US-GLAXOSMITHKLINE-A0533110A

PATIENT
  Sex: Male

DRUGS (12)
  1. ADVAIR DISKUS 100/50 [Suspect]
     Indication: DRUG USE FOR UNKNOWN INDICATION
     Dosage: 1PUFF TWICE PER DAY
     Route: 055
     Dates: start: 20040101
  2. COZAAR [Concomitant]
  3. TRICOR [Concomitant]
  4. SPIRONOLACTONE [Concomitant]
  5. NEXIUM [Concomitant]
  6. ACTONEL [Concomitant]
  7. COREG [Concomitant]
  8. ASPIRIN [Concomitant]
  9. NIASPAN [Concomitant]
  10. CRESTOR [Concomitant]
  11. INSULIN [Concomitant]
  12. LANTUS [Concomitant]

REACTIONS (2)
  - DRUG INEFFECTIVE [None]
  - PHARMACEUTICAL PRODUCT COMPLAINT [None]
